FAERS Safety Report 23542931 (Version 1)
Quarter: 2024Q1

REPORT INFORMATION
  Report Type: Spontaneous
  Country: US (occurrence: US)
  Receive Date: 20240220
  Receipt Date: 20240220
  Transmission Date: 20240410
  Serious: Yes (Hospitalization, Other)
  Sender: FDA-Public Use
  Company Number: US-SANDOZ-SDZ2024US015126

PATIENT
  Age: 53 Year
  Sex: Female

DRUGS (1)
  1. AMANTADINE HYDROCHLORIDE [Suspect]
     Active Substance: AMANTADINE HYDROCHLORIDE
     Indication: Parkinsonism
     Dosage: UNK
     Route: 065

REACTIONS (5)
  - Neuroleptic malignant syndrome [Recovered/Resolved]
  - Drug withdrawal syndrome [Recovered/Resolved]
  - Pulmonary embolism [Unknown]
  - White blood cell count increased [Unknown]
  - Hypernatraemia [Unknown]
